FAERS Safety Report 22147881 (Version 1)
Quarter: 2023Q1

REPORT INFORMATION
  Report Type: Spontaneous
  Country: US (occurrence: None)
  Receive Date: 20230328
  Receipt Date: 20230328
  Transmission Date: 20230417
  Serious: Yes (Hospitalization)
  Sender: FDA-Public Use
  Company Number: None

PATIENT
  Age: 63 Year
  Sex: Female

DRUGS (2)
  1. BIKTARVY [Suspect]
     Active Substance: BICTEGRAVIR SODIUM\EMTRICITABINE\TENOFOVIR ALAFENAMIDE FUMARATE
     Indication: HIV infection
     Dosage: OTHER QUANTITY : 50-200-25 DF;?FREQUENCY : DAILY;?
     Route: 048
     Dates: start: 20191203
  2. Prezocbix [Concomitant]

REACTIONS (2)
  - Weight increased [None]
  - Pulmonary embolism [None]

NARRATIVE: CASE EVENT DATE: 20230101
